FAERS Safety Report 11165934 (Version 3)
Quarter: 2016Q2

REPORT INFORMATION
  Report Type: Report from Study
  Country: US (occurrence: US)
  Receive Date: 20150604
  Receipt Date: 20160616
  Transmission Date: 20160815
  Serious: Yes (Other)
  Sender: FDA-Public Use
  Company Number: US-ACTELION-A-NJ2015-117100

PATIENT
  Age: 69 Year
  Sex: Female

DRUGS (6)
  1. VELETRI [Suspect]
     Active Substance: EPOPROSTENOL
     Dosage: 36.19 NG/KG, PER MIN
     Route: 042
  2. VELETRI [Suspect]
     Active Substance: EPOPROSTENOL
     Dosage: 29.04 NG/KG, PER MIN
     Route: 042
  3. OPSUMIT [Suspect]
     Active Substance: MACITENTAN
     Indication: PULMONARY HYPERTENSION
     Dosage: 10 MG, QD
     Route: 048
     Dates: start: 20141205
  4. VELETRI [Suspect]
     Active Substance: EPOPROSTENOL
     Indication: PULMONARY HYPERTENSION
     Dosage: 4.46 NG/KG, PER MIN
     Route: 042
     Dates: start: 20150312
  5. OPSUMIT [Suspect]
     Active Substance: MACITENTAN
     Dosage: 10 MG, QD
     Route: 048
  6. VELETRI [Suspect]
     Active Substance: EPOPROSTENOL
     Dosage: 5.2 NG/KG, PER MIN
     Route: 042
     Dates: start: 20150409

REACTIONS (19)
  - Dyspnoea [Unknown]
  - Ear discomfort [Unknown]
  - Flushing [Unknown]
  - Infection [Unknown]
  - Diarrhoea [Unknown]
  - Sinus disorder [Unknown]
  - Drug dose omission [Unknown]
  - Pain in jaw [Unknown]
  - Headache [Unknown]
  - Weight decreased [Unknown]
  - Blister [Recovered/Resolved]
  - Nightmare [Unknown]
  - Gastroenteritis viral [Unknown]
  - Insomnia [Unknown]
  - Multiple allergies [Unknown]
  - Nausea [Unknown]
  - Dizziness [Unknown]
  - Fatigue [Unknown]
  - Vomiting [Unknown]
